FAERS Safety Report 24714273 (Version 1)
Quarter: 2024Q4

REPORT INFORMATION
  Report Type: Spontaneous
  Country: US (occurrence: US)
  Receive Date: 20241209
  Receipt Date: 20241209
  Transmission Date: 20250114
  Serious: Yes (Other)
  Sender: FOUNDATION CONSUMER BRANDS
  Company Number: US-FOUNDATIONCONSUMERHC-2024-US-063991

PATIENT
  Age: 42 Year
  Sex: Male
  Weight: 124.74 kg

DRUGS (5)
  1. ANBESOL MAXIMUM STRENGTH [Suspect]
     Active Substance: BENZOCAINE
     Indication: Toothache
     Dosage: UNSPECIFIED AMOUNT APPLIED TOPICALLY 3 TO 4 TIMES DAILY
     Route: 061
     Dates: start: 202406
  2. ANBESOL MAXIMUM STRENGTH LIQUID [Suspect]
     Active Substance: BENZOCAINE
     Indication: Toothache
     Dosage: UNSPECIFIED AMOUNT APPLIED TOPICALLY 3 TO 4 TIMES DAILY
     Route: 061
     Dates: start: 202406
  3. LISINOPRIL [Concomitant]
     Active Substance: LISINOPRIL
  4. ASPIRIN [Concomitant]
     Active Substance: ASPIRIN
  5. UNSPECIFIED INGREDIENT [Concomitant]
     Active Substance: UNSPECIFIED INGREDIENT

REACTIONS (6)
  - Intentional product misuse [Unknown]
  - Tooth loss [Not Recovered/Not Resolved]
  - Tooth disorder [Not Recovered/Not Resolved]
  - Product use issue [Unknown]
  - Tooth fracture [Not Recovered/Not Resolved]
  - Self esteem decreased [Unknown]

NARRATIVE: CASE EVENT DATE: 20240101
